FAERS Safety Report 4681774-1 (Version None)
Quarter: 2005Q2

REPORT INFORMATION
  Report Type: 
  Country: None (occurrence: None)
  Receive Date: 20050602
  Receipt Date: 20050524
  Transmission Date: 20051028
  Serious: Yes (Other)
  Sender: FDA-Public Use
  Company Number: 2005-05-1872

PATIENT
  Age: 77 Year
  Sex: Male

DRUGS (9)
  1. CLARINEX D 24 HOUR [Suspect]
     Indication: SINUS CONGESTION
     Dosage: 1/2-1TAB* ORAL
     Route: 048
     Dates: start: 20050524, end: 20050524
  2. CLARINEX D 24 HOUR [Suspect]
     Indication: SINUS CONGESTION
     Dosage: 1/2-1TAB* ORAL
     Route: 048
     Dates: start: 20050523
  3. BENAZEPRIL HCL [Concomitant]
  4. CALCIUM GLUCONATE [Concomitant]
  5. NEXIUM (ESOMEPRAZOLE) CAPSULES ORAL [Concomitant]
  6. TERAZOSIN [Concomitant]
  7. SIMVASTATIN [Concomitant]
  8. VITAMINS/MINERALS/DIETARY SUPPLEMENTS (NOS) [Concomitant]
  9. ASPIRIN [Concomitant]

REACTIONS (6)
  - DYSPHAGIA [None]
  - EMOTIONAL DISTRESS [None]
  - FOREIGN BODY TRAUMA [None]
  - INSOMNIA [None]
  - ORAL INTAKE REDUCED [None]
  - SALIVARY HYPERSECRETION [None]
